FAERS Safety Report 5795796-0 (Version None)
Quarter: 2008Q3

REPORT INFORMATION
  Report Type: 
  Country: None (occurrence: None)
  Receive Date: 20080701
  Receipt Date: 20080507
  Transmission Date: 20090109
  Serious: No
  Sender: FDA-Public Use
  Company Number: US-BAYER-200822648NA

PATIENT
  Age: 42 Year
  Sex: Male

DRUGS (1)
  1. ULTRAVIST 300 [Suspect]
     Indication: COMPUTERISED TOMOGRAM HEAD
     Dosage: TOTAL DAILY DOSE: 90  ML  UNIT DOSE: 100 ML
     Route: 042
     Dates: start: 20080506, end: 20080506

REACTIONS (1)
  - URTICARIA [None]
